FAERS Safety Report 8080932-6 (Version None)
Quarter: 2012Q1

REPORT INFORMATION
  Report Type: 
  Country: None (occurrence: None)
  Receive Date: 20120130
  Receipt Date: 20120123
  Transmission Date: 20120608
  Serious: Yes (Death, Life-Threatening)
  Sender: FDA-Public Use
  Company Number: US-SANOFI-AVENTIS-2012SA004039

PATIENT
  Age: 76 Year
  Sex: Male

DRUGS (9)
  1. LOPRESSOR [Concomitant]
  2. MULTAQ [Suspect]
     Route: 048
  3. MONOPRIL [Concomitant]
  4. ATIVAN [Concomitant]
  5. PRAVACHOL [Concomitant]
  6. PRILOSEC [Concomitant]
  7. COUMADIN [Concomitant]
  8. LISINOPRIL AND HYDROCHLOROTHIAZIDE [Concomitant]
     Dosage: 20-12.5MG
  9. GLUCOVANCE [Concomitant]

REACTIONS (4)
  - MULTI-ORGAN FAILURE [None]
  - PANCREATITIS NECROTISING [None]
  - DUODENAL PERFORATION [None]
  - SEPTIC SHOCK [None]
